FAERS Safety Report 8419436-7 (Version None)
Quarter: 2012Q2

REPORT INFORMATION
  Report Type: 
  Country: None (occurrence: None)
  Receive Date: 20120607
  Receipt Date: 20120522
  Transmission Date: 20120825
  Serious: Yes (Death)
  Sender: FDA-Public Use
  Company Number: FR-GLAXOSMITHKLINE-B0797689A

PATIENT
  Sex: Male

DRUGS (1)
  1. AVANDAMET [Suspect]
     Indication: TYPE 2 DIABETES MELLITUS
     Route: 048
     Dates: start: 20060101, end: 20100922

REACTIONS (10)
  - MALAISE [None]
  - DEATH [None]
  - MYOCARDIAL INFARCTION [None]
  - LOSS OF CONSCIOUSNESS [None]
  - FALL [None]
  - HEART RATE IRREGULAR [None]
  - ABDOMINAL DISTENSION [None]
  - SWELLING FACE [None]
  - FATIGUE [None]
  - EYE SWELLING [None]
